FAERS Safety Report 16419326 (Version 1)
Quarter: 2019Q2

REPORT INFORMATION
  Report Type: Spontaneous
  Country: TT (occurrence: TT)
  Receive Date: 20190612
  Receipt Date: 20190612
  Transmission Date: 20190711
  Serious: Yes (Other)
  Sender: FDA-Public Use
  Company Number: TT-BAYER-2019-109452

PATIENT
  Age: 26 Year
  Sex: Female

DRUGS (1)
  1. YASMIN [Suspect]
     Active Substance: DROSPIRENONE\ETHINYL ESTRADIOL
     Indication: POLYCYSTIC OVARIES
     Dosage: UNK
     Route: 048

REACTIONS (9)
  - Depression [None]
  - Alopecia [None]
  - Colitis ulcerative [None]
  - Inflammation [None]
  - Off label use [None]
  - Anxiety [None]
  - Thyroid disorder [None]
  - Adverse event [None]
  - Product use in unapproved indication [None]
